FAERS Safety Report 25810710 (Version 1)
Quarter: 2025Q3

REPORT INFORMATION
  Report Type: Spontaneous
  Country: US (occurrence: US)
  Receive Date: 20250917
  Receipt Date: 20250917
  Transmission Date: 20251021
  Serious: No
  Sender: Haleon PLC
  Company Number: US-HALEON-2262785

PATIENT
  Sex: Female

DRUGS (1)
  1. NICODERM CQ [Suspect]
     Active Substance: NICOTINE
     Indication: Smoking cessation therapy
     Dates: start: 20250910, end: 20250912

REACTIONS (3)
  - Urticaria [Recovering/Resolving]
  - Application site pruritus [Not Recovered/Not Resolved]
  - Nightmare [Recovering/Resolving]

NARRATIVE: CASE EVENT DATE: 20250910
